FAERS Safety Report 17985589 (Version 2)
Quarter: 2020Q3

REPORT INFORMATION
  Report Type: Spontaneous
  Country: JP (occurrence: JP)
  Receive Date: 20200706
  Receipt Date: 20200710
  Transmission Date: 20201103
  Serious: Yes (Other)
  Sender: FDA-Public Use
  Company Number: JP-JNJFOC-20200639443

PATIENT
  Age: 94 Year
  Sex: Female

DRUGS (6)
  1. ONETRAM [Concomitant]
     Active Substance: TRAMADOL HYDROCHLORIDE
     Route: 048
  2. BELSOMRA [Concomitant]
     Active Substance: SUVOREXANT
     Route: 048
  3. DUROTEP [Suspect]
     Active Substance: FENTANYL
     Indication: CANCER PAIN
     Dosage: UNKNOWN 2.1 MG. 25MCG/HR
     Route: 062
  4. AMITIZA [Concomitant]
     Active Substance: LUBIPROSTONE
     Route: 048
  5. NAUZELIN [Concomitant]
     Active Substance: DOMPERIDONE
     Route: 065
  6. TRAMAL [Concomitant]
     Active Substance: TRAMADOL
     Route: 065

REACTIONS (2)
  - Femur fracture [Unknown]
  - Fall [Unknown]
